FAERS Safety Report 8055323-4 (Version None)
Quarter: 2012Q1

REPORT INFORMATION
  Report Type: 
  Country: None (occurrence: None)
  Receive Date: 20120119
  Receipt Date: 20120109
  Transmission Date: 20120608
  Serious: Yes (Hospitalization)
  Sender: FDA-Public Use
  Company Number: US-BAYER-2011-045508

PATIENT
  Age: 27 Year
  Sex: Female
  Weight: 106 kg

DRUGS (5)
  1. YAZ [Suspect]
     Dosage: UNK
     Dates: start: 20090424, end: 20090519
  2. DARVOCET [Concomitant]
     Indication: HEADACHE
     Route: 048
  3. YAZ [Suspect]
     Indication: CONTRACEPTION
     Dosage: UNK
     Dates: start: 20070918, end: 20071213
  4. CAMILA [Concomitant]
     Indication: CONTRACEPTION
     Dosage: UNK
     Dates: start: 20081201, end: 20090427
  5. DILANTIN [Concomitant]

REACTIONS (2)
  - INJURY [None]
  - SUPERIOR SAGITTAL SINUS THROMBOSIS [None]
